FAERS Safety Report 5066021-3 (Version None)
Quarter: 2006Q3

REPORT INFORMATION
  Report Type: 
  Country: None (occurrence: None)
  Receive Date: 20060731
  Receipt Date: 20060731
  Transmission Date: 20061208
  Serious: Yes (Other)
  Sender: FDA-Public Use
  Company Number: None

PATIENT
  Sex: Female
  Weight: 65.7716 kg

DRUGS (1)
  1. AMBIEN CR [Suspect]
     Indication: INSOMNIA
     Dosage: ONE  AT BED  PO
     Route: 048
     Dates: start: 20060622, end: 20060722

REACTIONS (3)
  - ABNORMAL SLEEP-RELATED EVENT [None]
  - AMNESIA [None]
  - DRUG EFFECT DECREASED [None]
